FAERS Safety Report 9454504 (Version 3)
Quarter: 2013Q3

REPORT INFORMATION
  Report Type: Spontaneous
  Country: PE (occurrence: PE)
  Receive Date: 20130812
  Receipt Date: 20130823
  Transmission Date: 20140515
  Serious: Yes (Other)
  Sender: FDA-Public Use
  Company Number: PE-GLAXOSMITHKLINE-A1037055A

PATIENT
  Age: 75 Year
  Sex: Male

DRUGS (2)
  1. ELTROMBOPAG [Suspect]
     Indication: MYELODYSPLASTIC SYNDROME
     Dosage: 25MG PER DAY
     Route: 048
     Dates: start: 20130715, end: 20130802
  2. CHEMOTHERAPY [Concomitant]

REACTIONS (5)
  - Upper gastrointestinal haemorrhage [Recovered/Resolved]
  - Faeces discoloured [Recovered/Resolved]
  - Asthenia [Recovered/Resolved]
  - Off label use [Unknown]
  - Gastritis erosive [Recovered/Resolved]
